FAERS Safety Report 6874711-2 (Version None)
Quarter: 2010Q3

REPORT INFORMATION
  Report Type: 
  Country: None (occurrence: None)
  Receive Date: 20100722
  Receipt Date: 20100713
  Transmission Date: 20110219
  Serious: Yes (Other)
  Sender: FDA-Public Use
  Company Number: RB-12320-2010

PATIENT
  Age: 24 Year
  Sex: Female

DRUGS (1)
  1. SUBOXONE [Suspect]
     Indication: DRUG DEPENDENCE
     Dosage: (DOSING DETAILS ARE UNKNOWN SUBLINGUAL)
     Route: 060
     Dates: start: 20080101

REACTIONS (1)
  - ADRENAL INSUFFICIENCY [None]
